FAERS Safety Report 7267165-8 (Version None)
Quarter: 2011Q1

REPORT INFORMATION
  Report Type: 
  Country: None (occurrence: None)
  Receive Date: 20110119
  Receipt Date: 20110111
  Transmission Date: 20110831
  Serious: Yes (Death)
  Sender: FDA-Public Use
  Company Number: 2011SP001827

PATIENT
  Age: 58 Year

DRUGS (1)
  1. DANAPAROID SODIUM (DANAPAROID SODIUM/ 01353902/ ) [Suspect]
     Indication: ANTICOAGULANT THERAPY

REACTIONS (4)
  - PERITONEAL HAEMORRHAGE [None]
  - THORACIC HAEMORRHAGE [None]
  - HAEMOGLOBIN DECREASED [None]
  - LIVER TRANSPLANT [None]
